FAERS Safety Report 10509394 (Version 1)
Quarter: 2014Q4

REPORT INFORMATION
  Report Type: Spontaneous
  Country: US (occurrence: US)
  Receive Date: 20141009
  Receipt Date: 20141009
  Transmission Date: 20150528
  Serious: No
  Sender: FDA-Public Use
  Company Number: US-009507513-1410USA004008

PATIENT
  Age: 1 Year
  Sex: Female
  Weight: 8.16 kg

DRUGS (1)
  1. COPPERTONE KIDS SPF 50 [Suspect]
     Active Substance: OCTINOXATE\OCTISALATE\ZINC OXIDE
     Indication: PROPHYLAXIS AGAINST SOLAR RADIATION
     Dosage: UNK, QD
     Route: 061

REACTIONS (2)
  - Eye irritation [Recovering/Resolving]
  - Accidental exposure to product [Unknown]

NARRATIVE: CASE EVENT DATE: 20141005
